FAERS Safety Report 11672552 (Version 1)
Quarter: 2015Q4

REPORT INFORMATION
  Report Type: Spontaneous
  Country: US (occurrence: None)
  Receive Date: 20151027
  Receipt Date: 20151027
  Transmission Date: 20160304
  Serious: No
  Sender: FDA-Public Use
  Company Number: None

PATIENT
  Age: 33 Year
  Sex: Female
  Weight: 91.63 kg

DRUGS (9)
  1. LORATADINE. [Concomitant]
     Active Substance: LORATADINE
  2. VIT. B-12 [Concomitant]
  3. TRAMADOL. [Concomitant]
     Active Substance: TRAMADOL
  4. CALCIUM [Concomitant]
     Active Substance: CALCIUM
  5. FLAXSEED [Concomitant]
     Active Substance: FLAX SEED
  6. FISH OIL [Concomitant]
     Active Substance: FISH OIL
  7. LEVOTHYROXINE 0.125 [Suspect]
     Active Substance: LEVOTHYROXINE
     Indication: HYPOTHYROIDISM
     Route: 048
     Dates: start: 19871201, end: 19871231
  8. SYNTHROID [Concomitant]
     Active Substance: LEVOTHYROXINE SODIUM
  9. VIT. D, FOLIC ACID, VIT. B - COMPLEX [Concomitant]
     Active Substance: FOLIC ACID\VITAMINS

REACTIONS (12)
  - Insomnia [None]
  - Muscle spasms [None]
  - Product substitution issue [None]
  - Tremor [None]
  - Temperature intolerance [None]
  - Hyperhidrosis [None]
  - Headache [None]
  - Tachycardia [None]
  - Nervousness [None]
  - Drug intolerance [None]
  - Palpitations [None]
  - Fatigue [None]

NARRATIVE: CASE EVENT DATE: 19861201
